FAERS Safety Report 9877401 (Version 2)
Quarter: 2014Q1

REPORT INFORMATION
  Report Type: Report from Study
  Country: DE (occurrence: DE)
  Receive Date: 20140206
  Receipt Date: 20140221
  Transmission Date: 20141002
  Serious: Yes (Hospitalization)
  Sender: FDA-Public Use
  Company Number: DE-MILLENNIUM PHARMACEUTICALS, INC.-2014JNJ000272

PATIENT
  Sex: 0

DRUGS (31)
  1. VELCADE [Suspect]
     Indication: PLASMA CELL MYELOMA
     Dosage: 2.2 MG, UNK
     Route: 065
     Dates: start: 20140103
  2. MELPHALAN [Concomitant]
     Indication: PLASMA CELL MYELOMA
     Dosage: 15 MG, UNK
     Dates: start: 20140103
  3. PREDNISOLONE [Concomitant]
     Indication: PLASMA CELL MYELOMA
     Dosage: UNK
     Dates: start: 20120726
  4. PREDNISOLONE [Concomitant]
     Dosage: 100 MG, UNK
     Dates: start: 20140103
  5. EBRANTIL                           /00631801/ [Concomitant]
     Dosage: UNK
  6. EBRANTIL                           /00631801/ [Concomitant]
     Dosage: UNK
     Dates: start: 20120808
  7. MOXONIDIN [Concomitant]
  8. SIMVABETA [Concomitant]
  9. CODIOVAN [Concomitant]
  10. PANTOPRAZOL [Concomitant]
  11. L-THYROXIN [Concomitant]
  12. AMLODIPIN                          /00972401/ [Concomitant]
  13. CLOPIDOGREL [Concomitant]
  14. LACTULOSE [Concomitant]
  15. NOVALGIN                           /00169801/ [Concomitant]
  16. ZOPICLON [Concomitant]
  17. OXIS TURBOHALER [Concomitant]
  18. JUNIK [Concomitant]
  19. XALATAN [Concomitant]
  20. ACICLOVIR [Concomitant]
     Dosage: UNK
     Dates: start: 20110721
  21. ZOMETA [Concomitant]
     Dosage: UNK
     Dates: start: 20120306
  22. DUOPLAVIN [Concomitant]
     Dosage: UNK
     Dates: start: 20120726
  23. VALSARTAN [Concomitant]
     Dosage: UNK
     Dates: start: 20120726
  24. TOREM                              /01036501/ [Concomitant]
     Dosage: UNK
     Dates: start: 20120726
  25. MOVICOL                            /01625101/ [Concomitant]
     Dosage: UNK
     Dates: start: 20120726
  26. FORMOTEROL [Concomitant]
     Dosage: UNK
     Dates: start: 20120726
  27. VENTOLAIR [Concomitant]
     Dosage: UNK
     Dates: start: 20120726
  28. DEKRISTOL [Concomitant]
     Dosage: UNK
     Dates: start: 20120726
  29. DUROGESIC [Concomitant]
     Dosage: UNK
     Dates: start: 20120809
  30. NEPRESOL                           /00017902/ [Concomitant]
     Dosage: UNK
     Dates: start: 20120808
  31. BIFITERAL [Concomitant]
     Dosage: UNK
     Dates: start: 20120808

REACTIONS (1)
  - Dehydration [Recovered/Resolved]
